FAERS Safety Report 6371455-0 (Version None)
Quarter: 2009Q3

REPORT INFORMATION
  Report Type: 
  Country: None (occurrence: None)
  Receive Date: 20090923
  Receipt Date: 20081211
  Transmission Date: 20100115
  Serious: Yes (Other)
  Sender: FDA-Public Use
  Company Number: US-ASTRAZENECA-2007UW09702

PATIENT
  Age: 15957 Day
  Sex: Female

DRUGS (3)
  1. SEROQUEL [Suspect]
     Indication: DEPRESSION
     Route: 048
     Dates: start: 20001001, end: 20010316
  2. ZYPREXA [Concomitant]
     Indication: DEPRESSION
     Dates: start: 20011201, end: 20020601
  3. RISPERDAL [Concomitant]
     Indication: DEPRESSION
     Dates: start: 20020601, end: 20030601

REACTIONS (2)
  - PANCREATITIS ACUTE [None]
  - TYPE 2 DIABETES MELLITUS [None]
